FAERS Safety Report 10365765 (Version 1)
Quarter: 2014Q3

REPORT INFORMATION
  Report Type: Spontaneous
  Country: US (occurrence: US)
  Receive Date: 20140806
  Receipt Date: 20140806
  Transmission Date: 20150326
  Serious: Yes (Other)
  Sender: FDA-Public Use
  Company Number: US-PFIZER INC-2014215923

PATIENT
  Age: 92 Year
  Sex: Female

DRUGS (1)
  1. PREMARIN [Suspect]
     Active Substance: ESTROGENS, CONJUGATED
     Dosage: UNK
     Dates: start: 2012

REACTIONS (5)
  - Disease progression [Unknown]
  - Pruritus [Unknown]
  - Urethral haemorrhage [Unknown]
  - Haemorrhage [Unknown]
  - Deafness [Unknown]
